FAERS Safety Report 5286028-0 (Version None)
Quarter: 2007Q1

REPORT INFORMATION
  Report Type: 
  Country: None (occurrence: None)
  Receive Date: 20070329
  Receipt Date: 20070316
  Transmission Date: 20070707
  Serious: Yes (Life-Threatening)
  Sender: FDA-Public Use
  Company Number: T200700122

PATIENT
  Sex: Male

DRUGS (2)
  1. OPTIMARK [Suspect]
     Dosage: INTRAVENOUS
     Route: 042
  2. OMNISCAN [Suspect]
     Dosage: INTRAVENOUS
     Route: 042

REACTIONS (1)
  - NEPHROGENIC FIBROSING DERMOPATHY [None]
